FAERS Safety Report 6832350-3 (Version None)
Quarter: 2010Q3

REPORT INFORMATION
  Report Type: 
  Country: None (occurrence: None)
  Receive Date: 20100712
  Receipt Date: 20100702
  Transmission Date: 20110219
  Serious: Yes (Other)
  Sender: FDA-Public Use
  Company Number: DE-ABBOTT-10P-062-0656181-00

PATIENT
  Age: 20 Year
  Sex: Female

DRUGS (9)
  1. ADALIMUMAB [Suspect]
     Indication: JUVENILE ARTHRITIS
  2. INFLIXIMAB [Suspect]
     Indication: JUVENILE ARTHRITIS
  3. METHOTREXATE [Suspect]
     Indication: JUVENILE ARTHRITIS
  4. ETANERCEPT [Suspect]
     Indication: JUVENILE ARTHRITIS
  5. LEFLUNOMIDE [Suspect]
     Indication: JUVENILE ARTHRITIS
  6. INDOMETHACIN [Concomitant]
     Indication: PRODUCT USED FOR UNKNOWN INDICATION
  7. DICLOFENAC SODIUM [Concomitant]
     Indication: PRODUCT USED FOR UNKNOWN INDICATION
  8. PREDNISOLONE [Concomitant]
     Indication: PRODUCT USED FOR UNKNOWN INDICATION
  9. HYDROXYCHLOROQUINE [Concomitant]
     Indication: PRODUCT USED FOR UNKNOWN INDICATION

REACTIONS (1)
  - CERVICAL DYSPLASIA [None]
